FAERS Safety Report 10060405 (Version 1)
Quarter: 2014Q2

REPORT INFORMATION
  Report Type: Spontaneous
  Country: DE (occurrence: DE)
  Receive Date: 20140404
  Receipt Date: 20140404
  Transmission Date: 20141212
  Serious: Yes (Other)
  Sender: FDA-Public Use
  Company Number: DE-AMGEN-DEUSP2014023003

PATIENT
  Age: 60 Year
  Sex: Female

DRUGS (1)
  1. XGEVA [Suspect]
     Indication: BREAST CANCER
     Dosage: UNK
     Route: 065
     Dates: start: 2014

REACTIONS (2)
  - Cellulitis [Unknown]
  - Pain [Unknown]
